FAERS Safety Report 11516967 (Version 2)
Quarter: 2016Q1

REPORT INFORMATION
  Report Type: Spontaneous
  Country: US (occurrence: US)
  Receive Date: 20150917
  Receipt Date: 20160323
  Transmission Date: 20160525
  Serious: Yes (Death, Other)
  Sender: FDA-Public Use
  Company Number: US-TAKEDA-2014TUS014795

PATIENT

DRUGS (2)
  1. AVANDIA [Concomitant]
     Active Substance: ROSIGLITAZONE MALEATE
     Dosage: 4 MG, UNK
     Dates: start: 2003, end: 2004
  2. ACTOS [Suspect]
     Active Substance: PIOGLITAZONE HYDROCHLORIDE
     Indication: TYPE 2 DIABETES MELLITUS
     Dosage: UNK
     Route: 048
     Dates: start: 2000, end: 2012

REACTIONS (4)
  - Death [Fatal]
  - Renal impairment [Unknown]
  - Metastases to kidney [Unknown]
  - Metastatic carcinoma of the bladder [Unknown]

NARRATIVE: CASE EVENT DATE: 201207
